FAERS Safety Report 21599590 (Version 1)
Quarter: 2022Q4

REPORT INFORMATION
  Report Type: Spontaneous
  Country: US (occurrence: US)
  Receive Date: 20221115
  Receipt Date: 20221115
  Transmission Date: 20230112
  Serious: Yes (Hospitalization)
  Sender: FDA-Public Use
  Company Number: US-JNJFOC-20221114394

PATIENT
  Age: 27 Year
  Sex: Male
  Weight: 77.180 kg

DRUGS (4)
  1. UPTRAVI [Suspect]
     Active Substance: SELEXIPAG
     Indication: Essential hypertension
     Route: 048
     Dates: end: 20221011
  2. REMODULIN [Suspect]
     Active Substance: TREPROSTINIL
     Indication: Essential hypertension
     Dosage: CONCENTRATION 1.0 MG/ML?SELF-FILLED REMUNITY CASSETTE WITH 2.4 ML AT A PUMP RATE OF 27 MCL/HOUR
     Route: 058
     Dates: start: 20221011
  3. TADALAFIL [Concomitant]
     Active Substance: TADALAFIL
  4. LETAIRIS [Concomitant]
     Active Substance: AMBRISENTAN

REACTIONS (6)
  - Headache [Unknown]
  - Therapy change [Unknown]
  - Infusion site irritation [Recovering/Resolving]
  - Infusion site pain [Recovering/Resolving]
  - Nasal congestion [Unknown]
  - Device failure [Unknown]

NARRATIVE: CASE EVENT DATE: 20221001
